FAERS Safety Report 25573050 (Version 2)
Quarter: 2025Q3

REPORT INFORMATION
  Report Type: Spontaneous
  Country: US (occurrence: US)
  Receive Date: 20250717
  Receipt Date: 20250723
  Transmission Date: 20251021
  Serious: No
  Sender: SANOFI AVENTIS
  Company Number: US-SA-2025SA202544

PATIENT
  Age: 45 Year
  Sex: Male

DRUGS (2)
  1. ELITEK [Suspect]
     Active Substance: RASBURICASE
     Indication: Hormone-refractory prostate cancer
     Dosage: 0.2 MG, QD, UP TO 5DAYS
     Route: 042
  2. ELITEK [Suspect]
     Active Substance: RASBURICASE
     Indication: Blood uric acid increased

REACTIONS (1)
  - Intentional product misuse [Unknown]
